FAERS Safety Report 10017255 (Version 1)
Quarter: 2014Q1

REPORT INFORMATION
  Report Type: Spontaneous
  Country: US (occurrence: US)
  Receive Date: 20140318
  Receipt Date: 20140318
  Transmission Date: 20141002
  Serious: No
  Sender: FDA-Public Use
  Company Number: US-SHIRE-US201400564

PATIENT
  Sex: 0

DRUGS (1)
  1. LIALDA [Suspect]
     Indication: PRODUCT USED FOR UNKNOWN INDICATION
     Dosage: 2.4 G (2 TABLETS), UNKNOWN (A DAY)
     Route: 048

REACTIONS (3)
  - Tinnitus [Unknown]
  - Fatigue [Unknown]
  - Abdominal discomfort [Unknown]
